FAERS Safety Report 5753569-9 (Version None)
Quarter: 2008Q2

REPORT INFORMATION
  Report Type: 
  Country: None (occurrence: None)
  Receive Date: 20080527
  Receipt Date: 20080509
  Transmission Date: 20081010
  Serious: Yes (Hospitalization)
  Sender: FDA-Public Use
  Company Number: 2008AL004479

PATIENT
  Age: 82 Year
  Sex: Female
  Weight: 58.9676 kg

DRUGS (10)
  1. DIGOXIN [Suspect]
     Indication: ARRHYTHMIA
     Dosage: .125MG DAILY PO
     Route: 048
     Dates: end: 20080507
  2. PKAVIX [Concomitant]
  3. ASPIRIN [Concomitant]
  4. DILTIAZEM [Concomitant]
  5. SYNTHROID [Concomitant]
  6. LANOXIN [Concomitant]
  7. BENICAR [Concomitant]
  8. CLIPZIDE [Concomitant]
  9. FOSAMAX [Concomitant]
  10. SIMVASTIN [Concomitant]

REACTIONS (2)
  - ASTHENIA [None]
  - VOMITING [None]
